FAERS Safety Report 8047230-8 (Version None)
Quarter: 2012Q1

REPORT INFORMATION
  Report Type: 
  Country: None (occurrence: None)
  Receive Date: 20120116
  Receipt Date: 20120110
  Transmission Date: 20120608
  Serious: Yes (Death, Hospitalization, Other)
  Sender: FDA-Public Use
  Company Number: US-ASTELLAS-2011US003589

PATIENT
  Sex: Male
  Weight: 79 kg

DRUGS (10)
  1. PEPCID [Concomitant]
     Indication: PRODUCT USED FOR UNKNOWN INDICATION
     Dosage: UNK
     Route: 065
  2. ERLOTINIB HYDROCHLORIDE [Suspect]
     Indication: NON-SMALL CELL LUNG CANCER
     Dosage: 150 MG, UID/QD
     Route: 048
     Dates: start: 20110406, end: 20110610
  3. MS CONTIN [Concomitant]
     Indication: PAIN
     Dosage: UNK
     Route: 048
  4. AVODART [Concomitant]
     Indication: PROSTATOMEGALY
     Dosage: UNK
     Route: 048
  5. PERCOCET [Concomitant]
     Indication: PAIN
     Dosage: UNK
     Route: 048
  6. FLOMAX [Concomitant]
     Indication: DYSURIA
     Dosage: UNK
     Route: 065
  7. SINEMET [Concomitant]
     Indication: PRODUCT USED FOR UNKNOWN INDICATION
     Dosage: 25 - 100 MG UNK
     Route: 048
  8. SENNA [Concomitant]
     Indication: PRODUCT USED FOR UNKNOWN INDICATION
     Dosage: UNK
     Route: 065
  9. TAMSULOSIN HCL [Concomitant]
     Indication: MICTURITION DISORDER
     Dosage: UNK
     Route: 048
  10. COLACE [Concomitant]
     Indication: LAXATIVE SUPPORTIVE CARE
     Dosage: UNK
     Route: 065

REACTIONS (13)
  - DECUBITUS ULCER [None]
  - GASTROOESOPHAGEAL REFLUX DISEASE [None]
  - DYSPNOEA [None]
  - METASTASIS [None]
  - BACK PAIN [None]
  - LACERATION [None]
  - ABSCESS [None]
  - RADIATION SKIN INJURY [None]
  - FALL [None]
  - PNEUMONIA [None]
  - DEATH [None]
  - PNEUMONIA ASPIRATION [None]
  - DYSPHAGIA [None]
